FAERS Safety Report 9746290 (Version 1)
Quarter: 2013Q4

REPORT INFORMATION
  Report Type: Spontaneous
  Country: US (occurrence: None)
  Receive Date: 20131209
  Receipt Date: 20131209
  Transmission Date: 20140711
  Serious: Yes (Other)
  Sender: FDA-Public Use
  Company Number: None

PATIENT
  Age: 92 Year
  Sex: Male

DRUGS (1)
  1. PROLIA [Suspect]
     Indication: OSTEOPOROSIS
     Route: 058
     Dates: start: 20121102, end: 20131206

REACTIONS (6)
  - Dry skin [None]
  - Laceration [None]
  - Pharyngitis [None]
  - Sinusitis [None]
  - Cellulitis [None]
  - Disease recurrence [None]
